FAERS Safety Report 21985106 (Version 4)
Quarter: 2023Q1

REPORT INFORMATION
  Report Type: Spontaneous
  Country: US (occurrence: US)
  Receive Date: 20230213
  Receipt Date: 20230329
  Transmission Date: 20230417
  Serious: No
  Sender: FDA-Public Use
  Company Number: US-GSKCCFUS-Case-01619771_AE-91474

PATIENT
  Age: 32 Year
  Sex: Male

DRUGS (2)
  1. NUCALA [Suspect]
     Active Substance: MEPOLIZUMAB
     Indication: Asthma
     Dosage: 100 MG, Z (EVERY 4 WEEKS)
     Dates: start: 20230104
  2. NUCALA [Suspect]
     Active Substance: MEPOLIZUMAB
     Indication: Product used for unknown indication
     Dosage: UNK
     Dates: start: 2023

REACTIONS (7)
  - Chest pain [Recovering/Resolving]
  - Arthralgia [Unknown]
  - Injection site pain [Unknown]
  - Headache [Unknown]
  - Abdominal pain upper [Recovered/Resolved]
  - Pharyngeal erythema [Unknown]
  - Infection [Unknown]

NARRATIVE: CASE EVENT DATE: 20230201
